FAERS Safety Report 8216995-4 (Version None)
Quarter: 2012Q1

REPORT INFORMATION
  Report Type: 
  Country: None (occurrence: None)
  Receive Date: 20120319
  Receipt Date: 20120309
  Transmission Date: 20120608
  Serious: Yes (Hospitalization)
  Sender: FDA-Public Use
  Company Number: US-BIOGENIDEC-2012BI005673

PATIENT
  Age: 50 Year
  Sex: Female

DRUGS (1)
  1. AVONEX [Suspect]
     Indication: MULTIPLE SCLEROSIS
     Route: 030
     Dates: start: 20100626

REACTIONS (6)
  - MEMORY IMPAIRMENT [None]
  - FALL [None]
  - MULTIPLE SCLEROSIS RELAPSE [None]
  - LOSS OF CONTROL OF LEGS [None]
  - LOSS OF CONSCIOUSNESS [None]
  - DIZZINESS [None]
